FAERS Safety Report 7999457-9 (Version None)
Quarter: 2011Q4

REPORT INFORMATION
  Report Type: 
  Country: None (occurrence: None)
  Receive Date: 20111221
  Receipt Date: 20111219
  Transmission Date: 20120403
  Serious: No
  Sender: FDA-Public Use
  Company Number: US-PFIZER INC-2011308028

PATIENT
  Sex: Female

DRUGS (2)
  1. NIASPAN [Suspect]
     Dosage: 2000 MG, UNK
  2. LIPITOR [Suspect]
     Dosage: 80 MG, UNK

REACTIONS (1)
  - MYALGIA [None]
